FAERS Safety Report 8873429 (Version 2)
Quarter: 2012Q4

REPORT INFORMATION
  Report Type: 
  Country: US (occurrence: US)
  Receive Date: 20121030
  Receipt Date: 20121217
  Transmission Date: 20130627
  Serious: Yes (Death, Other)
  Sender: FDA-Public Use
  Company Number: US-ELI_LILLY_AND_COMPANY-US201210006822

PATIENT
  Sex: Female

DRUGS (2)
  1. GEMZAR [Suspect]
     Indication: BLADDER CANCER STAGE IV
     Dosage: UNK
     Route: 065
     Dates: start: 20111109, end: 20120104
  2. CISPLATIN [Concomitant]
     Indication: BLADDER CANCER STAGE IV

REACTIONS (1)
  - Malignant neoplasm progression [Fatal]
